FAERS Safety Report 13664340 (Version 8)
Quarter: 2019Q2

REPORT INFORMATION
  Report Type: Spontaneous
  Country: JP (occurrence: JP)
  Receive Date: 20170619
  Receipt Date: 20190521
  Transmission Date: 20190711
  Serious: Yes (Hospitalization)
  Sender: FDA-Public Use
  Company Number: JP-JNJFOC-20170615343

PATIENT
  Age: 25 Year
  Sex: Male
  Weight: 80 kg

DRUGS (9)
  1. ACELIO [Concomitant]
     Active Substance: ACETAMINOPHEN
     Indication: PYREXIA
     Route: 041
     Dates: start: 20170531
  2. ACELIO [Concomitant]
     Active Substance: ACETAMINOPHEN
     Indication: PAIN
     Route: 041
     Dates: start: 20170531
  3. MAXIPIME [Concomitant]
     Active Substance: CEFEPIME HYDROCHLORIDE
     Indication: PYREXIA
     Route: 041
     Dates: start: 20170601, end: 20170604
  4. YONDELIS [Suspect]
     Active Substance: TRABECTEDIN
     Indication: NEUROFIBROSARCOMA
     Route: 041
     Dates: start: 20170530
  5. LASIX [Concomitant]
     Active Substance: FUROSEMIDE
     Indication: URINE OUTPUT DECREASED
     Route: 042
     Dates: start: 20170530
  6. NEO-MINOPHAGEN C [Concomitant]
     Active Substance: AMMONIUM GLYCYRRHIZATE
     Indication: LIVER DISORDER
     Route: 041
     Dates: start: 20170601, end: 20170609
  7. LASIX [Concomitant]
     Active Substance: FUROSEMIDE
     Indication: OEDEMA
     Route: 042
     Dates: start: 20170530
  8. YONDELIS [Suspect]
     Active Substance: TRABECTEDIN
     Indication: NEUROFIBROSARCOMA
     Route: 041
     Dates: start: 20170509
  9. MAXIPIME [Concomitant]
     Active Substance: CEFEPIME HYDROCHLORIDE
     Indication: INFECTION
     Route: 041
     Dates: start: 20170601, end: 20170604

REACTIONS (5)
  - Capillary leak syndrome [Recovered/Resolved]
  - Liver disorder [Unknown]
  - Renal disorder [Unknown]
  - Rhabdomyolysis [Recovered/Resolved]
  - White blood cell count decreased [Unknown]

NARRATIVE: CASE EVENT DATE: 20170514
